FAERS Safety Report 14610607 (Version 2)
Quarter: 2018Q2

REPORT INFORMATION
  Report Type: Report from Study
  Country: None (occurrence: US)
  Receive Date: 20180307
  Receipt Date: 20180619
  Transmission Date: 20180711
  Serious: Yes (Hospitalization, Other)
  Sender: FDA-Public Use
  Company Number: US-ABBVIE-18K-163-2215466-00

PATIENT
  Age: 69 Year
  Sex: Female
  Weight: 70.37 kg

DRUGS (4)
  1. METHOTREXATE. [Concomitant]
     Active Substance: METHOTREXATE
     Indication: PRODUCT USED FOR UNKNOWN INDICATION
  2. HUMIRA [Suspect]
     Active Substance: ADALIMUMAB
     Indication: PSORIATIC ARTHROPATHY
     Route: 058
     Dates: start: 20170912, end: 20171222
  3. HUMIRA [Suspect]
     Active Substance: ADALIMUMAB
     Route: 058
  4. RASUVO [Concomitant]
     Active Substance: METHOTREXATE SODIUM
     Indication: PRODUCT USED FOR UNKNOWN INDICATION

REACTIONS (8)
  - Respiratory failure [Unknown]
  - Atypical pneumonia [Recovering/Resolving]
  - Hypoxia [Unknown]
  - Pleurisy [Unknown]
  - Pneumonia mycoplasmal [Recovering/Resolving]
  - Immunodeficiency [Unknown]
  - Joint stiffness [Unknown]
  - Therapeutic response shortened [Unknown]

NARRATIVE: CASE EVENT DATE: 20180102
